FAERS Safety Report 12336145 (Version 4)
Quarter: 2016Q4

REPORT INFORMATION
  Report Type: Spontaneous
  Country: US (occurrence: US)
  Receive Date: 20160505
  Receipt Date: 20161215
  Transmission Date: 20170207
  Serious: Yes (Hospitalization)
  Sender: FDA-Public Use
  Company Number: US-PFIZER INC-2016210860

PATIENT
  Age: 67 Year
  Sex: Female

DRUGS (2)
  1. HERCEPTIN [Concomitant]
     Active Substance: TRASTUZUMAB
     Dosage: UNK, EVERY 3 WEEKS
     Route: 042
  2. AROMASIN [Suspect]
     Active Substance: EXEMESTANE
     Indication: HER-2 POSITIVE BREAST CANCER
     Dosage: 25 MG, 1X/DAY

REACTIONS (8)
  - Food craving [Unknown]
  - Memory impairment [Recovering/Resolving]
  - Arthralgia [Unknown]
  - Gait disturbance [Unknown]
  - Confusional state [Recovering/Resolving]
  - Hot flush [Unknown]
  - Paraesthesia [Not Recovered/Not Resolved]
  - Bone pain [Unknown]

NARRATIVE: CASE EVENT DATE: 20160415
